FAERS Safety Report 4473652-8 (Version None)
Quarter: 2004Q4

REPORT INFORMATION
  Report Type: 
  Country: None (occurrence: None)
  Receive Date: 20041013
  Receipt Date: 20041004
  Transmission Date: 20050328
  Serious: Yes (Hospitalization, Disabling)
  Sender: FDA-Public Use
  Company Number: IL-MERCK-0410ISR00003

PATIENT
  Age: 51 Year
  Sex: Female

DRUGS (3)
  1. ACETAMINOPHEN AND PROPOXYPHENE HYDROCHLORIDE [Concomitant]
     Indication: BACK PAIN
     Route: 048
  2. ATENOLOL [Concomitant]
     Route: 048
  3. VIOXX [Suspect]
     Indication: BACK PAIN
     Route: 048

REACTIONS (1)
  - CEREBROVASCULAR ACCIDENT [None]
